FAERS Safety Report 15647974 (Version 2)
Quarter: 2018Q4

REPORT INFORMATION
  Report Type: Spontaneous
  Country: SE (occurrence: SE)
  Receive Date: 20181122
  Receipt Date: 20181221
  Transmission Date: 20190205
  Serious: Yes (Hospitalization)
  Sender: FDA-Public Use
  Company Number: SE-TEVA-2018-SE-976525

PATIENT
  Age: 47 Year
  Sex: Male

DRUGS (10)
  1. MERONEM [Suspect]
     Active Substance: MEROPENEM
     Dates: start: 201005, end: 20100525
  2. FELODIPINE. [Concomitant]
     Active Substance: FELODIPINE
     Route: 065
  3. DALACIN [Concomitant]
     Active Substance: CLINDAMYCIN
     Dates: start: 201005
  4. METRONIDAZOL ACTAVIS [Suspect]
     Active Substance: METRONIDAZOLE
     Route: 065
     Dates: start: 20100522, end: 20100525
  5. OXYNORM [Concomitant]
     Active Substance: OXYCODONE HYDROCHLORIDE
     Indication: PAIN
     Route: 065
  6. ENALAPRIL [Concomitant]
     Active Substance: ENALAPRIL
     Route: 065
  7. DALACIN [Suspect]
     Active Substance: CLINDAMYCIN
     Dates: end: 20100501
  8. CLAFORAN [Suspect]
     Active Substance: CEFOTAXIME SODIUM
     Indication: INFECTION
     Dates: end: 20100501
  9. OXYCONTIN [Concomitant]
     Active Substance: OXYCODONE HYDROCHLORIDE
     Indication: PAIN
     Route: 065
  10. METHOTREXATE. [Suspect]
     Active Substance: METHOTREXATE
     Route: 065
     Dates: end: 20100429

REACTIONS (7)
  - Abscess [Recovered/Resolved]
  - Gamma-glutamyltransferase increased [Recovered/Resolved]
  - Rash [Recovered/Resolved]
  - Blood alkaline phosphatase increased [Recovered/Resolved]
  - Bacterial infection [Recovered/Resolved]
  - Rash [Not Recovered/Not Resolved]
  - Pruritus [Recovered/Resolved]

NARRATIVE: CASE EVENT DATE: 20100428
